FAERS Safety Report 8017677-4 (Version None)
Quarter: 2012Q1

REPORT INFORMATION
  Report Type: 
  Country: None (occurrence: None)
  Receive Date: 20120103
  Receipt Date: 20111114
  Transmission Date: 20120608
  Serious: Yes (Hospitalization)
  Sender: FDA-Public Use
  Company Number: US-BAYER-201039563NA

PATIENT
  Age: 41 Year
  Sex: Female
  Weight: 104 kg

DRUGS (6)
  1. CLARINEX [Concomitant]
     Route: 048
  2. MINOCIN [Concomitant]
     Route: 048
  3. DIOVAN [Concomitant]
     Route: 048
  4. YASMIN [Suspect]
     Indication: PREMENSTRUAL SYNDROME
  5. PROTONIX [Concomitant]
     Route: 048
  6. YASMIN [Suspect]
     Indication: ORAL CONTRACEPTION
     Route: 048
     Dates: start: 20040401, end: 20040715

REACTIONS (1)
  - DEEP VEIN THROMBOSIS [None]
